FAERS Safety Report 10399023 (Version 1)
Quarter: 2014Q3

REPORT INFORMATION
  Report Type: Spontaneous
  Country: IN (occurrence: IN)
  Receive Date: 20140821
  Receipt Date: 20140821
  Transmission Date: 20150326
  Serious: Yes (Other)
  Sender: FDA-Public Use
  Company Number: IN-MYLAN-2014M1001948

PATIENT

DRUGS (1)
  1. AMLODIPINE BESILATE [Suspect]
     Active Substance: AMLODIPINE BESYLATE
     Indication: HYPERTENSION
     Dosage: 5MG OD
     Route: 065

REACTIONS (4)
  - Purpura [Recovered/Resolved]
  - Photosensitivity reaction [Unknown]
  - Petechiae [None]
  - Gingival bleeding [Unknown]
